FAERS Safety Report 8784958 (Version 1)
Quarter: 2012Q4

REPORT INFORMATION
  Report Type: Spontaneous
  Country: US (occurrence: None)
  Receive Date: 20120907
  Receipt Date: 20120907
  Transmission Date: 20130627
  Serious: Yes (Hospitalization)
  Sender: FDA-Public Use
  Company Number: None

PATIENT
  Age: 71 Year
  Sex: Male
  Weight: 82.6 kg

DRUGS (2)
  1. YERVOY [Suspect]
     Indication: MELANOMA
     Dosage: q3 weeks x 4
     Route: 042
     Dates: start: 20120731, end: 20120821
  2. SYLATRON [Suspect]
     Route: 042
     Dates: start: 20120731, end: 20120828

REACTIONS (2)
  - Abdominal pain [None]
  - Vomiting [None]
